FAERS Safety Report 12357142 (Version 1)
Quarter: 2016Q2

REPORT INFORMATION
  Report Type: Spontaneous
  Country: US (occurrence: US)
  Receive Date: 20160511
  Receipt Date: 20160511
  Transmission Date: 20160815
  Serious: Yes (Death, Other)
  Sender: FDA-Public Use
  Company Number: US-TAKEDA-TPA2013A01128

PATIENT

DRUGS (13)
  1. LISPRO (HUMALOG) [Concomitant]
     Dosage: 100 IU, UNK
     Dates: start: 20110826
  2. AMARYL [Concomitant]
     Active Substance: GLIMEPIRIDE
     Dosage: 2 MG, UNK
     Dates: start: 20090325, end: 20091231
  3. BYETTA [Concomitant]
     Active Substance: EXENATIDE
     Dates: start: 20070329, end: 20070906
  4. ACTOS [Suspect]
     Active Substance: PIOGLITAZONE HYDROCHLORIDE
     Indication: TYPE 2 DIABETES MELLITUS
     Dosage: UNK
     Route: 048
     Dates: start: 20070531, end: 20110721
  5. AVANDIA [Concomitant]
     Active Substance: ROSIGLITAZONE MALEATE
     Dosage: 4 MG, UNK
     Dates: start: 20040825, end: 20050707
  6. GLUCOPHAGE [Concomitant]
     Active Substance: METFORMIN HYDROCHLORIDE
     Dosage: UNK
  7. GLARGINE/LANTUS [Concomitant]
     Dosage: 10 IU, UNK
     Dates: start: 20071002
  8. METFORMIN HCL [Concomitant]
     Active Substance: METFORMIN HYDROCHLORIDE
     Dosage: 500 MG, UNK
     Dates: start: 20080513, end: 20100108
  9. GLYBURIDE/METFORMIN [Concomitant]
     Active Substance: GLYBURIDE\METFORMIN
     Dosage: UNK
     Dates: start: 20040610, end: 200803
  10. AVANDIA [Concomitant]
     Active Substance: ROSIGLITAZONE MALEATE
     Dosage: 8 MG, UNK
  11. AMARYL [Concomitant]
     Active Substance: GLIMEPIRIDE
     Dates: start: 20100128, end: 20110825
  12. BYETTA [Concomitant]
     Active Substance: EXENATIDE
     Dates: start: 20070220, end: 20070322
  13. GLUCOVANCE [Concomitant]
     Active Substance: GLYBURIDE\METFORMIN HYDROCHLORIDE
     Dosage: UNK
     Dates: start: 20040312, end: 20040506

REACTIONS (2)
  - Death [Fatal]
  - Bladder cancer recurrent [Unknown]

NARRATIVE: CASE EVENT DATE: 20150810
